FAERS Safety Report 11170453 (Version 2)
Quarter: 2015Q3

REPORT INFORMATION
  Report Type: Spontaneous
  Country: FR (occurrence: FR)
  Receive Date: 20150608
  Receipt Date: 20150728
  Transmission Date: 20151125
  Serious: Yes (Death, Other)
  Sender: FDA-Public Use
  Company Number: FR-AUROBINDO-AUR-APL-2015-04875

PATIENT
  Age: 95 Year
  Sex: Female

DRUGS (9)
  1. KARDEGIC [Suspect]
     Active Substance: ASPIRIN LYSINE
     Indication: ATRIAL FIBRILLATION
     Dosage: 75 MG, DAILY
     Route: 048
     Dates: end: 20150228
  2. ODRIK [Suspect]
     Active Substance: TRANDOLAPRIL
     Indication: HYPERTENSION
     Dosage: 4 MG, DAILY
     Route: 048
     Dates: end: 20150228
  3. LORAZEPAM. [Suspect]
     Active Substance: LORAZEPAM
     Indication: ANXIETY
     Dosage: 2 DF, DAILY
     Route: 048
     Dates: end: 20150228
  4. FUMAFER [Suspect]
     Active Substance: FERROUS FUMARATE
     Indication: PRODUCT USED FOR UNKNOWN INDICATION
     Dosage: 3 DF, ONCE A DAY
     Route: 048
     Dates: end: 20150220
  5. NORSET [Suspect]
     Active Substance: MIRTAZAPINE
     Indication: PRODUCT USED FOR UNKNOWN INDICATION
     Dosage: 30 MG, DAILY
     Route: 048
     Dates: start: 20150228, end: 20150228
  6. CORDARON [Suspect]
     Active Substance: AMIODARONE HYDROCHLORIDE
     Indication: ATRIAL FIBRILLATION
     Dosage: 1 DF, DAILY
     Route: 048
     Dates: end: 20150228
  7. VENLAFAXINE ARROW LP 37.5 MG, PROLONGED-RELEASE CAPSULE [Suspect]
     Active Substance: VENLAFAXINE HYDROCHLORIDE
     Indication: DEPRESSION
     Dosage: 75 MG, DAILY
     Route: 048
     Dates: end: 20150228
  8. DOLIPRANE [Suspect]
     Active Substance: ACETAMINOPHEN
     Indication: PRODUCT USED FOR UNKNOWN INDICATION
     Dosage: 3 G, DAILY
     Route: 048
     Dates: end: 20150228
  9. MODOPAR [Suspect]
     Active Substance: BENSERAZIDE HYDROCHLORIDE\LEVODOPA
     Indication: PARKINSONISM
     Dosage: 187.5 MG, DAILY
     Route: 048
     Dates: end: 20150228

REACTIONS (12)
  - Medication error [Unknown]
  - Cardiac murmur [Unknown]
  - Blood creatine phosphokinase increased [Unknown]
  - Metabolic acidosis [Unknown]
  - Heart sounds abnormal [Unknown]
  - Blood glucose increased [Unknown]
  - Pupil fixed [Unknown]
  - Somnolence [Unknown]
  - Scratch [Unknown]
  - Blood bicarbonate increased [Unknown]
  - Blood lactic acid increased [Unknown]
  - Cerebellar haematoma [Fatal]

NARRATIVE: CASE EVENT DATE: 20150301
